FAERS Safety Report 24892377 (Version 1)
Quarter: 2025Q1

REPORT INFORMATION
  Report Type: Spontaneous
  Country: US (occurrence: US)
  Receive Date: 20250128
  Receipt Date: 20250128
  Transmission Date: 20250408
  Serious: No
  Sender: SANOFI AVENTIS
  Company Number: US-SA-2025SA025646

PATIENT
  Age: 54 Year
  Sex: Female

DRUGS (1)
  1. MULTAQ [Suspect]
     Active Substance: DRONEDARONE
     Indication: Palpitations
     Dosage: UNK, BID (1 TAB AM 0.5 TAB PM)
     Route: 048

REACTIONS (2)
  - Off label use [Unknown]
  - Off label use [Unknown]
